FAERS Safety Report 17836104 (Version 1)
Quarter: 2020Q2

REPORT INFORMATION
  Report Type: Spontaneous
  Country: US (occurrence: US)
  Receive Date: 20200528
  Receipt Date: 20200528
  Transmission Date: 20200714
  Serious: Yes (Other)
  Sender: FDA-Public Use
  Company Number: US-PFIZER INC-2020208186

PATIENT
  Age: 88 Year
  Sex: Female
  Weight: 54.43 kg

DRUGS (1)
  1. CELEBREX [Suspect]
     Active Substance: CELECOXIB
     Indication: ARTHRITIS
     Dosage: UNK

REACTIONS (12)
  - Hypoaesthesia [Unknown]
  - Weight decreased [Unknown]
  - Impaired driving ability [Unknown]
  - Cardiac disorder [Unknown]
  - Malaise [Recovered/Resolved]
  - Gait disturbance [Unknown]
  - Gastrooesophageal reflux disease [Recovered/Resolved]
  - Tendonitis [Not Recovered/Not Resolved]
  - Scoliosis [Unknown]
  - Nausea [Recovered/Resolved]
  - Vomiting [Recovered/Resolved]
  - Hiatus hernia [Unknown]
